FAERS Safety Report 11849709 (Version 1)
Quarter: 2015Q4

REPORT INFORMATION
  Report Type: Spontaneous
  Country: IT (occurrence: IT)
  Receive Date: 20151218
  Receipt Date: 20151218
  Transmission Date: 20160305
  Serious: Yes (Hospitalization)
  Sender: FDA-Public Use
  Company Number: IT-SA-2015SA100042

PATIENT
  Sex: Male

DRUGS (2)
  1. RIFADIN [Suspect]
     Active Substance: RIFAMPIN
     Indication: MENINGITIS
     Route: 042
     Dates: start: 20150627, end: 20150704
  2. ROCEFIN [Suspect]
     Active Substance: CEFTRIAXONE SODIUM
     Indication: MENINGITIS
     Route: 042
     Dates: start: 20150627, end: 20150707

REACTIONS (4)
  - Hypertransaminasaemia [Recovering/Resolving]
  - Gamma-glutamyltransferase increased [Unknown]
  - Hyperlipasaemia [Unknown]
  - Hyperamylasaemia [Unknown]

NARRATIVE: CASE EVENT DATE: 20150630
